FAERS Safety Report 9923840 (Version 1)
Quarter: 2014Q1

REPORT INFORMATION
  Report Type: Spontaneous
  Country: US (occurrence: US)
  Receive Date: 20140225
  Receipt Date: 20140225
  Transmission Date: 20141002
  Serious: No
  Sender: FDA-Public Use
  Company Number: US-AMGEN-USASP2014003733

PATIENT
  Age: 38 Year
  Sex: Female
  Weight: 72 kg

DRUGS (6)
  1. ENBREL [Suspect]
     Indication: PRODUCT USED FOR UNKNOWN INDICATION
     Dosage: 50 MG, QWK
     Route: 058
  2. METHOTREXATE [Concomitant]
     Dosage: 2.5 MG, UNK
  3. SYNTHROID [Concomitant]
     Dosage: 50 MUG, UNK
  4. BIOTIN [Concomitant]
     Dosage: 2500 MUG, UNK
  5. FOLIC ACID [Concomitant]
     Dosage: UNK
  6. VITAMIN B [Concomitant]
     Dosage: UNK

REACTIONS (4)
  - Pyrexia [Unknown]
  - Cough [Unknown]
  - Nasal congestion [Unknown]
  - Ear pain [Unknown]
